FAERS Safety Report 4431852-7 (Version None)
Quarter: 2004Q3

REPORT INFORMATION
  Report Type: 
  Country: None (occurrence: None)
  Receive Date: 20040819
  Receipt Date: 20040804
  Transmission Date: 20050211
  Serious: Yes (Hospitalization)
  Sender: FDA-Public Use
  Company Number: 04P-020-0269690-00

PATIENT
  Sex: Female

DRUGS (5)
  1. SYNTHROID [Suspect]
     Dosage: 25 MCG, 1 IN 1 D, PER ORAL
     Route: 048
     Dates: start: 20040201, end: 20040801
  2. LOSARTAN POTASSIUM [Concomitant]
  3. DIGOXIN [Concomitant]
  4. AMIODARONE [Concomitant]
  5. FUROSEMIDE [Concomitant]

REACTIONS (18)
  - ALOPECIA [None]
  - ASTHENIA [None]
  - CONFUSIONAL STATE [None]
  - ERYTHEMA [None]
  - FALL [None]
  - FATIGUE [None]
  - HEADACHE [None]
  - HYPERHIDROSIS [None]
  - HYPERTENSION [None]
  - INCREASED APPETITE [None]
  - INSOMNIA [None]
  - IRRITABILITY [None]
  - MUSCLE RIGIDITY [None]
  - NERVOUSNESS [None]
  - PSYCHOMOTOR HYPERACTIVITY [None]
  - SOMNOLENCE [None]
  - TEMPERATURE INTOLERANCE [None]
  - TREMOR [None]
